FAERS Safety Report 9373044 (Version 7)
Quarter: 2014Q2

REPORT INFORMATION
  Report Type: Report from Study
  Country: AT (occurrence: AT)
  Receive Date: 20130627
  Receipt Date: 20140529
  Transmission Date: 20141212
  Serious: Yes (Hospitalization)
  Sender: FDA-Public Use
  Company Number: AT-GLAXOSMITHKLINE-Z0020032A

PATIENT
  Age: 66 Year
  Sex: Male
  Weight: 85.4 kg

DRUGS (1)
  1. OFATUMUMAB [Suspect]
     Indication: CHRONIC LYMPHOCYTIC LEUKAEMIA REFRACTORY
     Dosage: 300MG CYCLIC
     Route: 042
     Dates: start: 20130604

REACTIONS (6)
  - Anaemia [Recovered/Resolved]
  - Blood pressure decreased [Recovered/Resolved]
  - C-reactive protein increased [Recovered/Resolved]
  - Renal impairment [Recovered/Resolved]
  - Dyspnoea [Recovered/Resolved]
  - Pneumonia [Recovered/Resolved]
